FAERS Safety Report 5522000-0 (Version None)
Quarter: 2007Q4

REPORT INFORMATION
  Report Type: 
  Country: None (occurrence: None)
  Receive Date: 20071120
  Receipt Date: 20070928
  Transmission Date: 20080405
  Serious: Yes (Hospitalization)
  Sender: FDA-Public Use
  Company Number: US-BRISTOL-MYERS SQUIBB COMPANY-13924014

PATIENT
  Age: 60 Year
  Sex: Male

DRUGS (2)
  1. AVAPRO [Suspect]
  2. AVALIDE [Suspect]

REACTIONS (1)
  - HYPOTENSION [None]
